FAERS Safety Report 15718955 (Version 1)
Quarter: 2018Q4

REPORT INFORMATION
  Report Type: Report from Study
  Country: CA (occurrence: CA)
  Receive Date: 20181213
  Receipt Date: 20181213
  Transmission Date: 20190205
  Serious: Yes (Hospitalization)
  Sender: FDA-Public Use
  Company Number: CA-NALPROPION PHARMACEUTICALS INC.-2018-006139

PATIENT

DRUGS (2)
  1. CONTRAVE [Suspect]
     Active Substance: BUPROPION HYDROCHLORIDE\NALTREXONE HYDROCHLORIDE
     Indication: WEIGHT CONTROL
     Dosage: IN THE MORNING (1 DOSAGE FORMS,1 IN 1 D)
     Route: 048
     Dates: start: 20181001, end: 201811
  2. CONTRAVE [Suspect]
     Active Substance: BUPROPION HYDROCHLORIDE\NALTREXONE HYDROCHLORIDE
     Dosage: 1 TABLET IN MORNING AND 1 TABLET IN EVENING (2 DOSAGE FORMS,2 IN 1 D)
     Route: 048
     Dates: start: 20181126

REACTIONS (5)
  - Muscle spasms [Unknown]
  - Arthritis [Unknown]
  - Dizziness [Unknown]
  - Rectal haemorrhage [Unknown]
  - Pyrexia [Unknown]

NARRATIVE: CASE EVENT DATE: 201811
